FAERS Safety Report 23150856 (Version 1)
Quarter: 2023Q4

REPORT INFORMATION
  Report Type: Spontaneous
  Country: CN (occurrence: CN)
  Receive Date: 20231106
  Receipt Date: 20231106
  Transmission Date: 20240110
  Serious: Yes (Hospitalization)
  Sender: FDA-Public Use
  Company Number: CN-PFIZER INC-PV202300179918

PATIENT
  Age: 6 Year
  Sex: Male
  Weight: 22 kg

DRUGS (11)
  1. CYTARABINE [Suspect]
     Active Substance: CYTARABINE
     Indication: Lymphoma
     Dosage: 36 MG
     Route: 037
     Dates: start: 20230909, end: 20230909
  2. CYTARABINE [Suspect]
     Active Substance: CYTARABINE
     Dosage: 1.75 G, 2X/DAY
     Route: 042
     Dates: start: 20230913, end: 20230913
  3. METHOTREXATE SODIUM [Suspect]
     Active Substance: METHOTREXATE SODIUM
     Indication: Lymphoma
     Dosage: 0.43 G, 1X/DAY
     Route: 041
     Dates: start: 20230909, end: 20230909
  4. METHOTREXATE SODIUM [Suspect]
     Active Substance: METHOTREXATE SODIUM
     Dosage: 3.9 G, 1X/DAY
     Route: 041
     Dates: start: 20230909, end: 20230909
  5. METHOTREXATE SODIUM [Suspect]
     Active Substance: METHOTREXATE SODIUM
     Dosage: 12 MG
     Route: 037
     Dates: start: 20230909, end: 20230909
  6. CYCLOPHOSPHAMIDE [Suspect]
     Active Substance: CYCLOPHOSPHAMIDE
     Indication: Lymphoma
     Dosage: 0.174 G, 2X/DAY
     Route: 041
     Dates: start: 20230910, end: 20230912
  7. DEXAMETHASONE SODIUM PHOSPHATE [Concomitant]
     Active Substance: DEXAMETHASONE SODIUM PHOSPHATE
     Indication: Lymphoma
     Dosage: 4 MG, 1X/DAY
     Route: 037
     Dates: start: 20230909, end: 20230909
  8. DEXAMETHASONE SODIUM PHOSPHATE [Concomitant]
     Active Substance: DEXAMETHASONE SODIUM PHOSPHATE
     Dosage: 20 MG/(M2.D)
     Dates: start: 20230909, end: 20230913
  9. PEGASPARGASE [Concomitant]
     Active Substance: PEGASPARGASE
     Indication: Lymphoma
     Dosage: 2215 IU, 1X/DAY
     Route: 030
     Dates: start: 20230914, end: 20230914
  10. VINDESINE [Concomitant]
     Active Substance: VINDESINE
     Indication: Lymphoma
     Dosage: 2 MG/(M2.D)
     Dates: start: 20230909
  11. MESNA [Concomitant]
     Active Substance: MESNA
     Indication: Lymphoma
     Dosage: 70 MG/M2 (CTX0, 4, 8 H)

REACTIONS (9)
  - Myelosuppression [Recovering/Resolving]
  - Abdominal distension [Unknown]
  - Decreased appetite [Unknown]
  - Lip dry [Unknown]
  - Oral candidiasis [Unknown]
  - Feeding disorder [Unknown]
  - Hepatic function abnormal [Unknown]
  - Granulocyte count decreased [Recovering/Resolving]
  - Sepsis [Unknown]

NARRATIVE: CASE EVENT DATE: 20230918
